FAERS Safety Report 13671851 (Version 6)
Quarter: 2019Q2

REPORT INFORMATION
  Report Type: Report from Study
  Country: GB (occurrence: GB)
  Receive Date: 20170621
  Receipt Date: 20190425
  Transmission Date: 20190711
  Serious: Yes (Hospitalization, Other)
  Sender: FDA-Public Use
  Company Number: GB-BRISTOL-MYERS SQUIBB COMPANY-BMS-2017-021631

PATIENT
  Sex: Female

DRUGS (1)
  1. ABATACEPT [Suspect]
     Active Substance: ABATACEPT
     Indication: RHEUMATOID ARTHRITIS
     Dosage: 125 MG, QWK
     Route: 058
     Dates: start: 20141209

REACTIONS (7)
  - Malaise [Unknown]
  - Neoplasm malignant [Unknown]
  - Musculoskeletal chest pain [Unknown]
  - Product dose omission [Unknown]
  - Sepsis [Unknown]
  - Influenza [Unknown]
  - Atrial fibrillation [Not Recovered/Not Resolved]
